FAERS Safety Report 15965724 (Version 2)
Quarter: 2019Q2

REPORT INFORMATION
  Report Type: Report from Study
  Country: JP (occurrence: JP)
  Receive Date: 20190215
  Receipt Date: 20190603
  Transmission Date: 20190711
  Serious: Yes (Hospitalization)
  Sender: FDA-Public Use
  Company Number: JP-EISAI MEDICAL RESEARCH-EC-2019-052054

PATIENT
  Age: 36 Year
  Sex: Male
  Weight: 81 kg

DRUGS (8)
  1. KAKKONTO [Concomitant]
     Active Substance: HERBALS
  2. E KEPPRA [Suspect]
     Active Substance: LEVETIRACETAM
     Indication: PARTIAL SEIZURES
     Route: 048
  3. FYCOMPA [Suspect]
     Active Substance: PERAMPANEL
     Route: 048
     Dates: start: 20171114, end: 20171119
  4. LAMICTAL [Concomitant]
     Active Substance: LAMOTRIGINE
  5. MYSTAN [Concomitant]
     Active Substance: CLOBAZAM
  6. DIAPP [Concomitant]
     Active Substance: DIAZEPAM
  7. FYCOMPA [Suspect]
     Active Substance: PERAMPANEL
     Indication: PARTIAL SEIZURES
     Route: 048
     Dates: start: 20170711, end: 20170911
  8. FYCOMPA [Suspect]
     Active Substance: PERAMPANEL
     Route: 048
     Dates: start: 20170912, end: 20171113

REACTIONS (2)
  - Agitation [Recovering/Resolving]
  - Aggression [Recovering/Resolving]

NARRATIVE: CASE EVENT DATE: 20171120
